FAERS Safety Report 17655184 (Version 3)
Quarter: 2020Q4

REPORT INFORMATION
  Report Type: Spontaneous
  Country: US (occurrence: US)
  Receive Date: 20200410
  Receipt Date: 20201119
  Transmission Date: 20210113
  Serious: No
  Sender: FDA-Public Use
  Company Number: US-SA-2020SA087390

PATIENT

DRUGS (1)
  1. NASACORT AQ [Suspect]
     Active Substance: TRIAMCINOLONE ACETONIDE
     Indication: ASTHMA
     Dosage: BID (1 SPRAY IN EACH NOSTRIL TWICE PER DAY)
     Route: 045

REACTIONS (3)
  - Off label use [Unknown]
  - Upper-airway cough syndrome [Recovered/Resolved]
  - Drug ineffective [Recovered/Resolved]
